FAERS Safety Report 16285897 (Version 4)
Quarter: 2022Q1

REPORT INFORMATION
  Report Type: Report from Study
  Country: JP (occurrence: JP)
  Receive Date: 20190508
  Receipt Date: 20220329
  Transmission Date: 20220423
  Serious: Yes (Death, Other)
  Sender: FDA-Public Use
  Company Number: JP-OTSUKA-2018_037158

PATIENT
  Age: 46 Year
  Sex: Male
  Weight: 80 kg

DRUGS (61)
  1. PONATINIB [Suspect]
     Active Substance: PONATINIB
     Indication: Philadelphia positive acute lymphocytic leukaemia
     Dosage: 15 MILLIGRAM, QD
     Route: 048
     Dates: start: 20180302, end: 20180309
  2. PONATINIB [Suspect]
     Active Substance: PONATINIB
     Dosage: 30 MILLIGRAM, QD
     Route: 048
     Dates: start: 20180310, end: 20180315
  3. PONATINIB [Suspect]
     Active Substance: PONATINIB
     Dosage: 45 MILLIGRAM, QD
     Route: 048
     Dates: start: 20180316, end: 20180320
  4. PONATINIB [Suspect]
     Active Substance: PONATINIB
     Dosage: 45 MILLIGRAM, QD
     Route: 048
     Dates: start: 20180401, end: 20180408
  5. PONATINIB [Suspect]
     Active Substance: PONATINIB
     Dosage: 45 MILLIGRAM, QD
     Route: 048
     Dates: start: 20180412, end: 20180530
  6. PONATINIB [Suspect]
     Active Substance: PONATINIB
     Dosage: 15 MILLIGRAM, QD
     Route: 048
     Dates: start: 20180602
  7. PONATINIB [Suspect]
     Active Substance: PONATINIB
     Dosage: 15 MILLIGRAM, QD
     Route: 048
     Dates: start: 20180712, end: 20180712
  8. PONATINIB [Suspect]
     Active Substance: PONATINIB
     Dosage: 30 MILLIGRAM, QD
     Route: 048
     Dates: start: 20180713, end: 20180714
  9. PONATINIB [Suspect]
     Active Substance: PONATINIB
     Dosage: 45 MILLIGRAM, QD
     Route: 048
     Dates: start: 20180715, end: 20180820
  10. CYCLOPHOSPHAMIDE [Suspect]
     Active Substance: CYCLOPHOSPHAMIDE
     Indication: Philadelphia positive acute lymphocytic leukaemia
     Dosage: 1200 MILLIGRAM
     Route: 065
     Dates: start: 20171018, end: 20171018
  11. CYCLOPHOSPHAMIDE [Suspect]
     Active Substance: CYCLOPHOSPHAMIDE
     Dosage: 2300 MILLIGRAM
     Route: 065
     Dates: start: 20180112, end: 20180112
  12. CYCLOPHOSPHAMIDE [Suspect]
     Active Substance: CYCLOPHOSPHAMIDE
     Dosage: 2200 MILLIGRAM
     Route: 065
     Dates: start: 20180411, end: 20180411
  13. CYCLOPHOSPHAMIDE [Suspect]
     Active Substance: CYCLOPHOSPHAMIDE
     Dosage: 4000 MILLIGRAM
     Route: 065
     Dates: start: 20180610, end: 20180611
  14. DAUNORUBICIN HYDROCHLORIDE [Suspect]
     Active Substance: DAUNORUBICIN HYDROCHLORIDE
     Indication: Philadelphia positive acute lymphocytic leukaemia
     Dosage: 90 MILLIGRAM
     Route: 065
     Dates: start: 20171018, end: 20171020
  15. DAUNORUBICIN HYDROCHLORIDE [Suspect]
     Active Substance: DAUNORUBICIN HYDROCHLORIDE
     Dosage: 87 MILLIGRAM
     Route: 065
     Dates: start: 20180112, end: 20180112
  16. DAUNORUBICIN HYDROCHLORIDE [Suspect]
     Active Substance: DAUNORUBICIN HYDROCHLORIDE
     Dosage: 84 MILLIGRAM
     Route: 065
     Dates: start: 20180411, end: 20180411
  17. VINCRISTINE SULFATE [Suspect]
     Active Substance: VINCRISTINE SULFATE
     Indication: Philadelphia positive acute lymphocytic leukaemia
     Dosage: 2 MILLIGRAM
     Route: 065
     Dates: start: 20171018, end: 20171018
  18. VINCRISTINE SULFATE [Suspect]
     Active Substance: VINCRISTINE SULFATE
     Dosage: 2 MILLIGRAM
     Route: 065
     Dates: start: 20171025, end: 20171025
  19. VINCRISTINE SULFATE [Suspect]
     Active Substance: VINCRISTINE SULFATE
     Dosage: 2 MILLIGRAM
     Route: 065
     Dates: start: 20171101, end: 20171101
  20. VINCRISTINE SULFATE [Suspect]
     Active Substance: VINCRISTINE SULFATE
     Dosage: 2 MILLIGRAM
     Route: 065
     Dates: start: 20180112, end: 20180112
  21. VINCRISTINE SULFATE [Suspect]
     Active Substance: VINCRISTINE SULFATE
     Dosage: 2 MILLIGRAM
     Route: 065
     Dates: start: 20180411, end: 20180411
  22. GANCICLOVIR [Suspect]
     Active Substance: GANCICLOVIR
     Indication: C-reactive protein increased
     Dosage: 350 MILLIGRAM, BID
     Route: 065
     Dates: start: 20180724, end: 20180821
  23. PREDNISOLONE [Concomitant]
     Active Substance: PREDNISOLONE
     Indication: Philadelphia positive acute lymphocytic leukaemia
     Dosage: 60 MILLIGRAM
     Route: 065
     Dates: start: 20170901, end: 20170905
  24. PREDNISOLONE [Concomitant]
     Active Substance: PREDNISOLONE
     Dosage: 100 MILLIGRAM
     Route: 065
     Dates: start: 20170906, end: 20170921
  25. PREDNISOLONE [Concomitant]
     Active Substance: PREDNISOLONE
     Dosage: 60 MILLIGRAM
     Route: 065
     Dates: start: 20170922, end: 20170923
  26. PREDNISOLONE [Concomitant]
     Active Substance: PREDNISOLONE
     Dosage: 30 MILLIGRAM
     Route: 065
     Dates: start: 20170924, end: 20170925
  27. PREDNISOLONE [Concomitant]
     Active Substance: PREDNISOLONE
     Dosage: 10 MILLIGRAM
     Route: 065
     Dates: start: 20170926, end: 20170928
  28. PREDNISOLONE [Concomitant]
     Active Substance: PREDNISOLONE
     Dosage: 120 MILLIGRAM
     Route: 065
     Dates: start: 20171018, end: 20171107
  29. PREDNISOLONE [Concomitant]
     Active Substance: PREDNISOLONE
     Dosage: 60 MILLIGRAM
     Route: 065
     Dates: start: 20171108, end: 20171109
  30. PREDNISOLONE [Concomitant]
     Active Substance: PREDNISOLONE
     Dosage: 30 MILLIGRAM
     Route: 065
     Dates: start: 20171110, end: 20171111
  31. PREDNISOLONE [Concomitant]
     Active Substance: PREDNISOLONE
     Dosage: 15 MILLIGRAM
     Route: 065
     Dates: start: 20171112, end: 20171114
  32. PREDNISOLONE [Concomitant]
     Active Substance: PREDNISOLONE
     Dosage: 115 MILLIGRAM
     Route: 065
     Dates: start: 20180112, end: 20180118
  33. PREDNISOLONE [Concomitant]
     Active Substance: PREDNISOLONE
     Dosage: 110 MILLIGRAM
     Route: 065
     Dates: start: 20180411, end: 20180417
  34. PREDNISOLONE [Concomitant]
     Active Substance: PREDNISOLONE
     Dosage: 55 MILLIGRAM
     Route: 065
     Dates: start: 20180418, end: 20180419
  35. PREDNISOLONE [Concomitant]
     Active Substance: PREDNISOLONE
     Dosage: 25 MILLIGRAM
     Route: 065
     Dates: start: 20180420, end: 20180421
  36. PREDNISOLONE [Concomitant]
     Active Substance: PREDNISOLONE
     Dosage: 10 MILLIGRAM
     Route: 065
     Dates: start: 20180422, end: 20180424
  37. PREDNISOLONE [Concomitant]
     Active Substance: PREDNISOLONE
     Dosage: 10 MILLIGRAM
     Route: 065
     Dates: start: 20180714, end: 20180820
  38. METHOTREXATE [Concomitant]
     Active Substance: METHOTREXATE
     Indication: Philadelphia positive acute lymphocytic leukaemia
     Dosage: 15 MILLIGRAM
     Route: 065
     Dates: start: 20171018, end: 20171018
  39. METHOTREXATE [Concomitant]
     Active Substance: METHOTREXATE
     Dosage: 2000 MILLIGRAM
     Route: 065
     Dates: start: 20171207, end: 20171207
  40. METHOTREXATE [Concomitant]
     Active Substance: METHOTREXATE
     Dosage: 15 MILLIGRAM
     Route: 065
     Dates: start: 20171207, end: 20171207
  41. METHOTREXATE [Concomitant]
     Active Substance: METHOTREXATE
     Dosage: 1945 MILLIGRAM
     Route: 065
     Dates: start: 20180227, end: 20180227
  42. METHOTREXATE [Concomitant]
     Active Substance: METHOTREXATE
     Dosage: 15 MILLIGRAM
     Route: 065
     Dates: start: 20180227, end: 20180227
  43. METHOTREXATE [Concomitant]
     Active Substance: METHOTREXATE
     Dosage: 26 MILLIGRAM
     Route: 065
     Dates: start: 20180614, end: 20180614
  44. METHOTREXATE [Concomitant]
     Active Substance: METHOTREXATE
     Dosage: 17 MILLIGRAM
     Route: 065
     Dates: start: 20180616, end: 20180616
  45. METHOTREXATE [Concomitant]
     Active Substance: METHOTREXATE
     Dosage: 17 MILLIGRAM
     Route: 065
     Dates: start: 20180619, end: 20180619
  46. DEXAMETHASONE [Concomitant]
     Active Substance: DEXAMETHASONE
     Indication: Philadelphia positive acute lymphocytic leukaemia
     Dosage: 3.3 MILLIGRAM
     Route: 065
     Dates: start: 20171018, end: 20171018
  47. DEXAMETHASONE [Concomitant]
     Active Substance: DEXAMETHASONE
     Dosage: 3.3 MILLIGRAM
     Route: 065
     Dates: start: 20171207, end: 20171207
  48. DEXAMETHASONE [Concomitant]
     Active Substance: DEXAMETHASONE
     Dosage: 3.3 MILLIGRAM
     Route: 065
     Dates: start: 20180227, end: 20180227
  49. METHYLPREDNISOLONE [Concomitant]
     Active Substance: METHYLPREDNISOLONE
     Indication: Philadelphia positive acute lymphocytic leukaemia
     Dosage: 50 MILLIGRAM, BID
     Route: 065
     Dates: start: 20171207, end: 20171209
  50. METHYLPREDNISOLONE [Concomitant]
     Active Substance: METHYLPREDNISOLONE
     Dosage: 50 MILLIGRAM, BID
     Route: 065
     Dates: start: 20180227, end: 20180301
  51. CYTARABINE [Concomitant]
     Active Substance: CYTARABINE
     Indication: Philadelphia positive acute lymphocytic leukaemia
     Dosage: 4000 MILLIGRAM, BID
     Route: 065
     Dates: start: 20171208, end: 20171209
  52. CYTARABINE [Concomitant]
     Active Substance: CYTARABINE
     Dosage: 3900 MILLIGRAM, BID
     Route: 065
     Dates: start: 20180228, end: 20180301
  53. CYTARABINE [Concomitant]
     Active Substance: CYTARABINE
     Dosage: 100 MILLIGRAM, BID
     Route: 065
     Dates: start: 20180531, end: 20180603
  54. DALTEPARIN SODIUM [Concomitant]
     Active Substance: DALTEPARIN SODIUM
     Indication: Prophylaxis
     Dosage: UNK
     Route: 065
     Dates: start: 20180302, end: 20180320
  55. DALTEPARIN SODIUM [Concomitant]
     Active Substance: DALTEPARIN SODIUM
     Dosage: UNK
     Route: 065
     Dates: start: 20180401, end: 20180501
  56. DALTEPARIN SODIUM [Concomitant]
     Active Substance: DALTEPARIN SODIUM
     Dosage: UNK
     Route: 065
     Dates: start: 20180525, end: 20180821
  57. ASPIRIN [Concomitant]
     Active Substance: ASPIRIN
     Indication: Prophylaxis
     Dosage: 100 MILLIGRAM
     Route: 065
     Dates: start: 20180502, end: 20180524
  58. ITRACONAZOLE [Concomitant]
     Active Substance: ITRACONAZOLE
     Indication: Prophylaxis
     Dosage: 20 MILLIGRAM
     Route: 065
     Dates: start: 20170831, end: 20180820
  59. TACROLIMUS [Concomitant]
     Active Substance: TACROLIMUS
     Indication: Prophylaxis
     Dosage: UNK
     Route: 065
     Dates: start: 20180612, end: 20180712
  60. MEROPENEM [Concomitant]
     Active Substance: MEROPENEM
     Indication: C-reactive protein increased
     Dosage: UNK
     Route: 065
     Dates: start: 20180714, end: 20180821
  61. AMIKACIN SULFATE [Concomitant]
     Active Substance: AMIKACIN SULFATE
     Indication: C-reactive protein increased
     Dosage: 200 MILLIGRAM, BID
     Route: 065
     Dates: start: 20180717, end: 20180724

REACTIONS (20)
  - Philadelphia positive acute lymphocytic leukaemia [Fatal]
  - C-reactive protein increased [Fatal]
  - Blood uric acid increased [Fatal]
  - Blood potassium increased [Fatal]
  - Disseminated intravascular coagulation [Fatal]
  - Blood alkaline phosphatase increased [Fatal]
  - Blood lactate dehydrogenase increased [Fatal]
  - Blood urea increased [Fatal]
  - Blood creatinine increased [Fatal]
  - Blood bilirubin increased [Fatal]
  - Aspartate aminotransferase increased [Fatal]
  - Anaemia [Fatal]
  - Alanine aminotransferase increased [Fatal]
  - Neutrophil count decreased [Fatal]
  - White blood cell count decreased [Fatal]
  - Hypertension [Fatal]
  - Platelet count decreased [Fatal]
  - Tachycardia [Fatal]
  - Rash [Recovering/Resolving]
  - Therapeutic product effect incomplete [Unknown]

NARRATIVE: CASE EVENT DATE: 20180417
